FAERS Safety Report 12869401 (Version 1)
Quarter: 2016Q4

REPORT INFORMATION
  Report Type: Report from Study
  Country: US (occurrence: US)
  Receive Date: 20161021
  Receipt Date: 20161021
  Transmission Date: 20170207
  Serious: Yes (Other)
  Sender: FDA-Public Use
  Company Number: PHEH2016US026786

PATIENT
  Age: 50 Year
  Sex: Female

DRUGS (1)
  1. AFINITOR [Suspect]
     Active Substance: EVEROLIMUS
     Indication: BREAST CANCER FEMALE
     Dosage: 10 MG, UNK
     Route: 065
     Dates: start: 20161012, end: 20161013

REACTIONS (2)
  - Loss of consciousness [Unknown]
  - Flushing [Unknown]

NARRATIVE: CASE EVENT DATE: 20161012
